FAERS Safety Report 10191036 (Version 1)
Quarter: 2014Q2

REPORT INFORMATION
  Report Type: Spontaneous
  Country: FR (occurrence: FR)
  Receive Date: 20140523
  Receipt Date: 20140523
  Transmission Date: 20141212
  Serious: Yes (Hospitalization)
  Sender: FDA-Public Use
  Company Number: FR-RANBAXY-2014US-81558

PATIENT
  Age: 87 Year
  Sex: Female
  Weight: 60 kg

DRUGS (7)
  1. PANTOPRAZOLE [Suspect]
     Indication: PRODUCT USED FOR UNKNOWN INDICATION
     Dosage: UNK
     Route: 048
     Dates: end: 20140315
  2. COTAREG [Suspect]
     Indication: HYPERTENSION
     Dosage: UNK
     Route: 048
     Dates: end: 20140315
  3. IXPRIM [Suspect]
     Indication: PAIN
     Dosage: UNK
     Route: 048
     Dates: end: 20140315
  4. AMLOR [Concomitant]
     Indication: HYPERTENSION
     Dosage: UNK
     Route: 065
  5. DOLIPRANE [Concomitant]
     Indication: PAIN
     Dosage: 1 G, TID
     Route: 065
  6. CACIT VITAMIN D3 [Concomitant]
     Indication: OSTEOPOROSIS
     Dosage: UNK
     Route: 065
  7. LYRICA [Concomitant]
     Indication: PAIN
     Dosage: 75 MG, QD
     Route: 065

REACTIONS (2)
  - Hypokalaemia [Recovered/Resolved]
  - Hyponatraemia [Recovered/Resolved]
